FAERS Safety Report 15899545 (Version 2)
Quarter: 2019Q1

REPORT INFORMATION
  Report Type: Report from Study
  Country: US (occurrence: US)
  Receive Date: 20190201
  Receipt Date: 20190218
  Transmission Date: 20190417
  Serious: Yes (Hospitalization, Other)
  Sender: FDA-Public Use
  Company Number: US-GILEAD-2019-0387902

PATIENT
  Age: 62 Year
  Sex: Female

DRUGS (6)
  1. AMBRISENTAN [Suspect]
     Active Substance: AMBRISENTAN
     Indication: PRODUCT USED FOR UNKNOWN INDICATION
     Dosage: 10 MG, QD
     Route: 065
     Dates: start: 20161221
  2. REMODULIN [Concomitant]
     Active Substance: TREPROSTINIL
  3. UPTRAVI [Concomitant]
     Active Substance: SELEXIPAG
  4. ADEMPAS [Concomitant]
     Active Substance: RIOCIGUAT
  5. OPSUMIT [Concomitant]
     Active Substance: MACITENTAN
  6. XARELTO [Concomitant]
     Active Substance: RIVAROXABAN

REACTIONS (4)
  - Dyspnoea [Unknown]
  - Pain [Unknown]
  - Injection site reaction [Unknown]
  - Pneumonia [Unknown]
